FAERS Safety Report 5520545-0 (Version None)
Quarter: 2007Q4

REPORT INFORMATION
  Report Type: 
  Country: None (occurrence: None)
  Receive Date: 20071115
  Receipt Date: 20050125
  Transmission Date: 20080405
  Serious: Yes (Hospitalization)
  Sender: FDA-Public Use
  Company Number: 2007AD000096

PATIENT
  Age: 32 Year
  Sex: Female

DRUGS (3)
  1. CEPHALEXIN [Suspect]
     Indication: UPPER RESPIRATORY TRACT INFECTION
     Dosage: 500 MG; QID
     Dates: start: 20040909, end: 20040901
  2. FLUOXETINE [Suspect]
     Indication: DEPRESSION
     Dosage: 20 MG; QD
     Dates: start: 20040720, end: 20040901
  3. PARACETAMOL WITH CODEINE PHOSPHATE [Concomitant]

REACTIONS (6)
  - ALANINE AMINOTRANSFERASE INCREASED [None]
  - ASPARTATE AMINOTRANSFERASE INCREASED [None]
  - CHILLS [None]
  - NAUSEA [None]
  - UPPER RESPIRATORY TRACT INFECTION [None]
  - VOMITING [None]
